FAERS Safety Report 10010769 (Version 1)
Quarter: 2014Q1

REPORT INFORMATION
  Report Type: Spontaneous
  Country: DE (occurrence: None)
  Receive Date: 20140311
  Receipt Date: 20140311
  Transmission Date: 20141002
  Serious: Yes (Hospitalization)
  Sender: FDA-Public Use
  Company Number: TPU2014-00060

PATIENT
  Age: 50 Year
  Sex: Male

DRUGS (9)
  1. VERSATIS [Suspect]
     Indication: NEURALGIA
     Route: 061
  2. PALEXIA RETARD [Suspect]
     Indication: NEURALGIA
     Dates: start: 20130927, end: 201311
  3. COLCHICIN [Suspect]
     Indication: FAMILIAL MEDITERRANEAN FEVER
     Dosage: 3,
  4. VOLTAREN (DICLOFENAC) [Concomitant]
  5. AMITRIPTYLINE (AMITRIPTYLINE HYDROCHLORIDE) [Concomitant]
  6. NOVAMINSULFON (METAMIZOLE SODIUM) [Concomitant]
  7. PANTOPRAZOL (PANTOPRAZOLE SODIUM SESQUIHYDRATE) [Concomitant]
  8. EUCREAS (EUCREAS) [Concomitant]
  9. HYDROCHLOROTHIAZIDE (HYDROCHLOROTHIAZIDE) [Concomitant]

REACTIONS (2)
  - Pyrexia [None]
  - Pain [None]
